FAERS Safety Report 19877570 (Version 1)
Quarter: 2021Q3

REPORT INFORMATION
  Report Type: Spontaneous
  Country: US (occurrence: US)
  Receive Date: 20210923
  Receipt Date: 20210923
  Transmission Date: 20211014
  Serious: No
  Sender: FDA-Public Use
  Company Number: US-PFIZER INC-2021708434

PATIENT
  Age: 69 Year
  Sex: Female

DRUGS (1)
  1. ESTRING [Suspect]
     Active Substance: ESTRADIOL
     Dosage: 2 MG (7.5MCG /24HOUR), INSERT 1 VAGINAL RING EVERY 2 MONTHS BY VAGINAL ROUTE)
     Route: 067

REACTIONS (2)
  - Off label use [Unknown]
  - Migraine [Unknown]
